FAERS Safety Report 22128487 (Version 1)
Quarter: 2023Q1

REPORT INFORMATION
  Report Type: Spontaneous
  Country: US (occurrence: US)
  Receive Date: 20230323
  Receipt Date: 20230323
  Transmission Date: 20230418
  Serious: No
  Sender: FDA-Public Use
  Company Number: US-ALLERGAN-2241949US

PATIENT
  Sex: Female

DRUGS (1)
  1. LINZESS [Suspect]
     Active Substance: LINACLOTIDE
     Indication: Product used for unknown indication
     Dosage: UNK
     Dates: start: 20221207

REACTIONS (5)
  - Poor quality product administered [Unknown]
  - Therapeutic response decreased [Unknown]
  - Product packaging quantity issue [Unknown]
  - Product outer packaging issue [Unknown]
  - Product packaging issue [Unknown]
